FAERS Safety Report 5599701-1 (Version None)
Quarter: 2008Q1

REPORT INFORMATION
  Report Type: 
  Country: None (occurrence: None)
  Receive Date: 20080123
  Receipt Date: 20080114
  Transmission Date: 20080703
  Serious: Yes (Other)
  Sender: FDA-Public Use
  Company Number: EE-BRISTOL-MYERS SQUIBB COMPANY-13983994

PATIENT
  Age: 41 Year
  Sex: Female

DRUGS (3)
  1. ATAZANAVIR SULFATE [Suspect]
     Indication: HIV INFECTION
     Dosage: 300 MG 17MAY06-18JAN07/INCREASED TO 400 MG ON 19JAN07-05NOV07; RESTARTED ON 08-NOV-2007
     Route: 048
     Dates: start: 20060517
  2. DIDANOSINE [Concomitant]
     Dates: start: 20060517
  3. LAMIVUDINE [Concomitant]
     Dates: start: 20060517

REACTIONS (2)
  - ABORTION SPONTANEOUS [None]
  - PREGNANCY [None]
